FAERS Safety Report 5326666-X (Version None)
Quarter: 2007Q2

REPORT INFORMATION
  Report Type: 
  Country: None (occurrence: None)
  Receive Date: 20070516
  Receipt Date: 20070504
  Transmission Date: 20071010
  Serious: Yes (Other)
  Sender: FDA-Public Use
  Company Number: US-PFIZER INC-2006052928

PATIENT
  Sex: Male

DRUGS (7)
  1. VIAGRA [Suspect]
     Indication: ERECTILE DYSFUNCTION
     Dates: start: 19981101, end: 20050902
  2. NADOLOL [Concomitant]
     Dates: start: 20010625, end: 20051227
  3. CALCIUM WITH VITAMIN D [Concomitant]
     Dates: start: 20020101
  4. VITAMIN B [Concomitant]
  5. GLUCOSAMINE [Concomitant]
     Dosage: TEXT:2
  6. VITAMIN CAP [Concomitant]
     Dosage: FREQ:DAILY
     Dates: start: 20030101
  7. NIACIN [Concomitant]
     Dates: start: 20030101

REACTIONS (2)
  - BLINDNESS [None]
  - OPTIC ISCHAEMIC NEUROPATHY [None]
